FAERS Safety Report 4765845-7 (Version None)
Quarter: 2005Q3

REPORT INFORMATION
  Report Type: 
  Country: None (occurrence: None)
  Receive Date: 20050906
  Receipt Date: 20050824
  Transmission Date: 20060218
  Serious: Yes (Hospitalization)
  Sender: FDA-Public Use
  Company Number: 200512672GDS

PATIENT
  Age: 72 Year
  Sex: Male

DRUGS (2)
  1. ASPIRIN [Suspect]
  2. WARFARIN SODIUM [Suspect]

REACTIONS (5)
  - ABDOMINAL PAIN [None]
  - ADRENAL HAEMORRHAGE [None]
  - ANAEMIA [None]
  - PROTHROMBIN TIME SHORTENED [None]
  - VENOUS THROMBOSIS [None]
